FAERS Safety Report 23126464 (Version 2)
Quarter: 2023Q4

REPORT INFORMATION
  Report Type: Spontaneous
  Country: US (occurrence: US)
  Receive Date: 20231030
  Receipt Date: 20231201
  Transmission Date: 20240110
  Serious: No
  Sender: FDA-Public Use
  Company Number: US-MYLANLABS-2023M1114079

PATIENT
  Age: 41 Year
  Sex: Female
  Weight: 95 kg

DRUGS (5)
  1. METHIMAZOLE [Suspect]
     Active Substance: METHIMAZOLE
     Indication: Product used for unknown indication
     Dosage: 5 MILLIGRAM, TID (1/2 TAB 3 TIMES A DAY START DATE: 26-AUG-2023)
     Route: 048
     Dates: end: 20230914
  2. METHIMAZOLE [Suspect]
     Active Substance: METHIMAZOLE
     Dosage: 5 MILLIGRAM, QD (1 DOSE FOR THE DAY 1/2 TAB START DATE: 12-OCT-2023)
     Route: 048
  3. METHIMAZOLE [Suspect]
     Active Substance: METHIMAZOLE
     Dosage: UNK (START DATE: 22-OCT-2023)
     Route: 048
  4. METOPROLOL [Concomitant]
     Active Substance: METOPROLOL
     Dosage: 10 MILLIGRAM
     Route: 065
  5. METOPROLOL [Concomitant]
     Active Substance: METOPROLOL
     Dosage: 25 MILLIGRAM, QD (START DATE: 26-AUG-2023)
     Route: 065
     Dates: end: 20230908

REACTIONS (5)
  - Asthma [Recovered/Resolved]
  - Productive cough [Unknown]
  - Periorbital swelling [Unknown]
  - Eye swelling [Unknown]
  - Wrong product administered [Unknown]

NARRATIVE: CASE EVENT DATE: 20230803
